FAERS Safety Report 5338626-3 (Version None)
Quarter: 2007Q2

REPORT INFORMATION
  Report Type: 
  Country: None (occurrence: None)
  Receive Date: 20070322
  Receipt Date: 20060814
  Transmission Date: 20071010
  Serious: Yes (Other)
  Sender: FDA-Public Use
  Company Number: 200612775BCC

PATIENT
  Age: 72 Year
  Sex: Female
  Weight: 55.7924 kg

DRUGS (4)
  1. ALEVE (CAPLET) [Suspect]
     Indication: PAIN
     Dosage: 660 MG, TOTAL DAILY, ORAL
     Route: 048
     Dates: start: 20060627, end: 20060628
  2. ALEVE (CAPLET) [Suspect]
     Indication: SCIATICA
     Dosage: 660 MG, TOTAL DAILY, ORAL
     Route: 048
     Dates: start: 20060627, end: 20060628
  3. SYNTHROID [Concomitant]
  4. LEVOXYL [Concomitant]

REACTIONS (5)
  - HAEMATOCHEZIA [None]
  - HYPERSENSITIVITY [None]
  - PRURITUS [None]
  - SCIATICA [None]
  - URTICARIA [None]
